FAERS Safety Report 8190042-5 (Version None)
Quarter: 2012Q1

REPORT INFORMATION
  Report Type: 
  Country: None (occurrence: None)
  Receive Date: 20120307
  Receipt Date: 20120228
  Transmission Date: 20120608
  Serious: Yes (Hospitalization)
  Sender: FDA-Public Use
  Company Number: NL-JNJFOC-20111209828

PATIENT
  Sex: Female
  Weight: 98.02 kg

DRUGS (17)
  1. NEUPOGEN [Suspect]
     Indication: DIFFUSE LARGE B-CELL LYMPHOMA
     Route: 058
     Dates: start: 20110729
  2. NEUPOGEN [Suspect]
     Route: 058
     Dates: start: 20111004
  3. PREDNISONE TAB [Suspect]
     Route: 048
     Dates: start: 20110723
  4. VINCRISTINE [Suspect]
     Indication: DIFFUSE LARGE B-CELL LYMPHOMA
     Route: 042
     Dates: start: 20111003
  5. VINCRISTINE [Suspect]
     Route: 042
     Dates: start: 20110728
  6. RITUXIMAB [Suspect]
     Route: 042
     Dates: start: 20110728
  7. PREDNISONE TAB [Suspect]
     Indication: DIFFUSE LARGE B-CELL LYMPHOMA
     Route: 048
     Dates: start: 20111003
  8. CYCLOPHOSPHAMIDE [Suspect]
     Route: 042
     Dates: start: 20110728
  9. DOXORUBICIN HCL [Suspect]
     Indication: DIFFUSE LARGE B-CELL LYMPHOMA
     Route: 042
     Dates: start: 20111003
  10. RITUXIMAB [Suspect]
     Route: 042
  11. ALLOPURINOL [Suspect]
     Indication: PROPHYLAXIS
     Route: 048
     Dates: start: 20110722
  12. ALLOPURINOL [Suspect]
     Route: 048
     Dates: start: 20110730
  13. DOXORUBICIN HCL [Suspect]
     Route: 042
     Dates: start: 20110728
  14. RITUXIMAB [Suspect]
     Indication: DIFFUSE LARGE B-CELL LYMPHOMA
     Route: 042
     Dates: start: 20111003
  15. CYCLOPHOSPHAMIDE [Suspect]
     Indication: DIFFUSE LARGE B-CELL LYMPHOMA
     Route: 042
     Dates: start: 20111003
  16. PROMETHAZINE [Suspect]
     Indication: PRODUCT USED FOR UNKNOWN INDICATION
     Route: 065
  17. HALOPERIDOL [Suspect]
     Indication: PRODUCT USED FOR UNKNOWN INDICATION
     Route: 065

REACTIONS (5)
  - MALAISE [None]
  - ANXIETY [None]
  - NEUTROPENIA [None]
  - DELIRIUM [None]
  - MENTAL DISORDER [None]
